FAERS Safety Report 25266702 (Version 1)
Quarter: 2025Q2

REPORT INFORMATION
  Report Type: Spontaneous
  Country: GB (occurrence: GB)
  Receive Date: 20250505
  Receipt Date: 20250505
  Transmission Date: 20250716
  Serious: Yes (Death)
  Sender: RECORDATI
  Company Number: GB-RECORDATI RARE DISEASE INC.-2025003016

PATIENT
  Sex: Male

DRUGS (1)
  1. ISTURISA [Suspect]
     Active Substance: OSILODROSTAT PHOSPHATE
     Indication: Product used for unknown indication
     Dosage: 2 MG, BID
     Dates: end: 202504

REACTIONS (1)
  - Disease progression [Fatal]
